FAERS Safety Report 19744382 (Version 1)
Quarter: 2021Q3

REPORT INFORMATION
  Report Type: Spontaneous
  Country: US (occurrence: US)
  Receive Date: 20210825
  Receipt Date: 20210825
  Transmission Date: 20211014
  Serious: No
  Sender: FDA-Public Use
  Company Number: US-PERRIGO-20US018696

PATIENT
  Age: 67 Year
  Sex: Female
  Weight: 81.63 kg

DRUGS (4)
  1. EVAMIST [Suspect]
     Active Substance: ESTRADIOL
     Dosage: 1.53 MG, QD
     Route: 062
     Dates: start: 20201210
  2. EVAMIST [Suspect]
     Active Substance: ESTRADIOL
     Indication: SLEEP DISORDER
     Dosage: UNKNOWN, QD
     Route: 062
     Dates: start: 20201207, end: 20201209
  3. EVAMIST [Suspect]
     Active Substance: ESTRADIOL
     Indication: MENOPAUSAL SYMPTOMS
     Dosage: 1.53 MG, QD
     Route: 062
     Dates: start: 202003, end: 20201114
  4. EVAMIST [Suspect]
     Active Substance: ESTRADIOL
     Indication: MOOD ALTERED
     Dosage: 1.53 MG, QD
     Route: 062
     Dates: start: 20201115, end: 20201206

REACTIONS (2)
  - Underdose [Recovered/Resolved]
  - Therapeutic product effect decreased [Recovered/Resolved]

NARRATIVE: CASE EVENT DATE: 20201207
